FAERS Safety Report 23769680 (Version 1)
Quarter: 2024Q2

REPORT INFORMATION
  Report Type: Spontaneous
  Country: US (occurrence: None)
  Receive Date: 20240421
  Receipt Date: 20240421
  Transmission Date: 20240716
  Serious: Yes (Life-Threatening, Hospitalization)
  Sender: FDA-Public Use
  Company Number: None

PATIENT
  Age: 71 Year
  Sex: Female

DRUGS (1)
  1. LITHIUM CARBONATE [Suspect]
     Active Substance: LITHIUM CARBONATE
     Dosage: FREQUENCY : AS DIRECTED;?
     Route: 048
     Dates: start: 20220506, end: 20220803

REACTIONS (8)
  - Acute kidney injury [None]
  - Toxicity to various agents [None]
  - Fatigue [None]
  - Tremor [None]
  - Gait disturbance [None]
  - Somnolence [None]
  - SARS-CoV-2 test positive [None]
  - Therapy change [None]

NARRATIVE: CASE EVENT DATE: 20230511
